FAERS Safety Report 8072164-2 (Version None)
Quarter: 2012Q1

REPORT INFORMATION
  Report Type: 
  Country: None (occurrence: None)
  Receive Date: 20120126
  Receipt Date: 20120118
  Transmission Date: 20120608
  Serious: Yes (Hospitalization)
  Sender: FDA-Public Use
  Company Number: US-BAYER-2011-080659

PATIENT
  Age: 20 Year
  Sex: Female
  Weight: 72.562 kg

DRUGS (2)
  1. YAZ [Suspect]
     Dosage: UNK
     Route: 048
     Dates: start: 20070701, end: 20090301
  2. ACETAMINOPHEN [Concomitant]

REACTIONS (3)
  - PAIN [None]
  - CHOLECYSTECTOMY [None]
  - INJURY [None]
